FAERS Safety Report 5455809-2 (Version None)
Quarter: 2007Q3

REPORT INFORMATION
  Report Type: 
  Country: None (occurrence: None)
  Receive Date: 20070918
  Receipt Date: 20070702
  Transmission Date: 20080115
  Serious: Yes (Hospitalization)
  Sender: FDA-Public Use
  Company Number: US-ASTRAZENECA-2006UW22663

PATIENT
  Age: 13432 Day
  Sex: Male
  Weight: 78.2 kg

DRUGS (2)
  1. SEROQUEL [Suspect]
     Indication: STRESS
     Dosage: 25 MG AND UP
     Route: 048
     Dates: start: 20030101
  2. PAXIL [Concomitant]

REACTIONS (5)
  - BIPOLAR DISORDER [None]
  - DEPRESSION [None]
  - DIABETES MELLITUS [None]
  - PSYCHOTIC DISORDER [None]
  - SCHIZOPHRENIA [None]
